FAERS Safety Report 5259188-5 (Version None)
Quarter: 2007Q1

REPORT INFORMATION
  Report Type: 
  Country: None (occurrence: None)
  Receive Date: 20070308
  Receipt Date: 20070226
  Transmission Date: 20070707
  Serious: Yes (Hospitalization)
  Sender: FDA-Public Use
  Company Number: US-SANOFI-SYNTHELABO-A03200701672

PATIENT
  Age: 37 Year
  Sex: Female

DRUGS (5)
  1. XANAX [Suspect]
     Dosage: UNK
     Route: 048
     Dates: start: 20050501, end: 20060501
  2. BUSPAR [Suspect]
     Dosage: UNK
     Route: 048
     Dates: start: 20050501, end: 20060501
  3. REBIF [Concomitant]
     Route: 058
  4. WELLBUTRIN [Suspect]
     Indication: DEPRESSION
     Dosage: UNK
     Route: 048
     Dates: start: 20050501, end: 20060501
  5. AMBIEN [Suspect]
     Indication: INSOMNIA
     Dosage: UNK
     Route: 048
     Dates: start: 20050801, end: 20060501

REACTIONS (1)
  - GRAND MAL CONVULSION [None]
